FAERS Safety Report 4614807-9 (Version None)
Quarter: 2005Q1

REPORT INFORMATION
  Report Type: 
  Country: None (occurrence: None)
  Receive Date: 20050322
  Receipt Date: 20050308
  Transmission Date: 20050727
  Serious: Yes (Death, Hospitalization)
  Sender: FDA-Public Use
  Company Number: DE-AMGEN-UK119903

PATIENT
  Sex: Female

DRUGS (4)
  1. ARANESP [Suspect]
     Indication: ANAEMIA OF MALIGNANT DISEASE
     Route: 065
     Dates: end: 20041201
  2. DOCETAXEL [Suspect]
  3. DOXORUBICIN HYDROCHLORIDE [Suspect]
  4. CYCLOPHOSPHAMIDE [Suspect]

REACTIONS (8)
  - BACK PAIN [None]
  - BUDD-CHIARI SYNDROME [None]
  - COAGULOPATHY [None]
  - GASTRIC OUTLET OBSTRUCTION [None]
  - HEPATIC FAILURE [None]
  - HEPATOCELLULAR DAMAGE [None]
  - NAUSEA [None]
  - VOMITING [None]
